FAERS Safety Report 5462908-8 (Version None)
Quarter: 2007Q3

REPORT INFORMATION
  Report Type: 
  Country: None (occurrence: None)
  Receive Date: 20070920
  Receipt Date: 20070911
  Transmission Date: 20080115
  Serious: Yes (Other)
  Sender: FDA-Public Use
  Company Number: NL-JNJFOC-20070700219

PATIENT
  Age: 44 Year
  Sex: Male
  Weight: 63 kg

DRUGS (3)
  1. REMICADE [Suspect]
     Indication: ANKYLOSING SPONDYLITIS
     Route: 042
  2. HUMIRA [Suspect]
     Indication: ANKYLOSING SPONDYLITIS
  3. OSCOREL [Concomitant]

REACTIONS (2)
  - HYPERSENSITIVITY [None]
  - TESTICULAR NEOPLASM [None]
